FAERS Safety Report 5870584-5 (Version None)
Quarter: 2008Q3

REPORT INFORMATION
  Report Type: 
  Country: None (occurrence: None)
  Receive Date: 20080904
  Receipt Date: 20080828
  Transmission Date: 20090109
  Serious: Yes (Hospitalization)
  Sender: FDA-Public Use
  Company Number: A0744934A

PATIENT
  Age: 41 Year
  Sex: Female

DRUGS (2)
  1. ADVAIR DISKUS 100/50 [Suspect]
     Indication: EMPHYSEMA
     Dosage: 1PUFF TWICE PER DAY
     Route: 055
     Dates: start: 20070101
  2. VITAMIN TAB [Concomitant]

REACTIONS (5)
  - DISTURBANCE IN ATTENTION [None]
  - DYSPNOEA [None]
  - FALL [None]
  - TOOTH FRACTURE [None]
  - VISUAL IMPAIRMENT [None]
